FAERS Safety Report 21712554 (Version 1)
Quarter: 2022Q4

REPORT INFORMATION
  Report Type: Spontaneous
  Country: US (occurrence: US)
  Receive Date: 20221212
  Receipt Date: 20221212
  Transmission Date: 20230112
  Serious: Yes (Hospitalization)
  Sender: FDA-Public Use
  Company Number: US-BRISTOL-MYERS SQUIBB COMPANY-2022-149587

PATIENT
  Age: 70 Year
  Sex: Female
  Weight: 59.87 kg

DRUGS (2)
  1. ELIQUIS [Suspect]
     Active Substance: APIXABAN
     Indication: Cerebrovascular accident prophylaxis
     Dates: start: 2014
  2. DILTIAZEM HYDROCHLORIDE [Concomitant]
     Active Substance: DILTIAZEM HYDROCHLORIDE
     Indication: Product used for unknown indication

REACTIONS (4)
  - COVID-19 [Unknown]
  - Influenza [Unknown]
  - Weight decreased [Unknown]
  - Contusion [Unknown]

NARRATIVE: CASE EVENT DATE: 20220101
